FAERS Safety Report 8291560-1 (Version None)
Quarter: 2012Q2

REPORT INFORMATION
  Report Type: 
  Country: None (occurrence: None)
  Receive Date: 20120417
  Receipt Date: 20120413
  Transmission Date: 20120825
  Serious: Yes (Other)
  Sender: FDA-Public Use
  Company Number: US-TEVA-331676USA

PATIENT
  Sex: Female

DRUGS (1)
  1. ZOLPIDEM [Suspect]

REACTIONS (7)
  - MALAISE [None]
  - DIZZINESS [None]
  - INSOMNIA [None]
  - PRODUCT QUALITY ISSUE [None]
  - LOSS OF CONSCIOUSNESS [None]
  - DRUG EFFECT INCREASED [None]
  - HYPERSOMNIA [None]
